FAERS Safety Report 4335001-5 (Version None)
Quarter: 2004Q2

REPORT INFORMATION
  Report Type: 
  Country: None (occurrence: None)
  Receive Date: 20040408
  Receipt Date: 20040401
  Transmission Date: 20050107
  Serious: Yes (Hospitalization)
  Sender: FDA-Public Use
  Company Number: US-ROCHE-363519

PATIENT
  Age: 46 Year
  Sex: Male

DRUGS (9)
  1. PEG-INTERFERON ALFA 2A (RO 25-8310) [Suspect]
     Route: 058
     Dates: start: 20030710
  2. BLINDED THYMOSIN ALFA 1 [Suspect]
     Route: 050
     Dates: start: 20030712
  3. PERCOCET [Concomitant]
  4. KLONOPIN [Concomitant]
  5. NEURONTIN [Concomitant]
  6. PROZAC [Concomitant]
  7. PAMELOR [Concomitant]
  8. VASOTEC [Concomitant]
  9. LIPITOR [Concomitant]

REACTIONS (9)
  - ANAEMIA [None]
  - AZOTAEMIA [None]
  - CHRONIC OBSTRUCTIVE AIRWAYS DISEASE [None]
  - HYPERCHOLESTEROLAEMIA [None]
  - HYPERTENSION [None]
  - PNEUMONIA [None]
  - PULMONARY HILUM MASS [None]
  - THERAPY NON-RESPONDER [None]
  - URINARY RETENTION [None]
